FAERS Safety Report 14256271 (Version 1)
Quarter: 2017Q4

REPORT INFORMATION
  Report Type: Spontaneous
  Country: FR (occurrence: FR)
  Receive Date: 20171206
  Receipt Date: 20171206
  Transmission Date: 20180321
  Serious: Yes (Hospitalization)
  Sender: FDA-Public Use
  Company Number: FR-MYLANLABS-2017M1075173

PATIENT
  Age: 40 Year
  Sex: Female
  Weight: 60 kg

DRUGS (7)
  1. RILPIVIRINE [Concomitant]
     Active Substance: RILPIVIRINE
     Indication: PRODUCT USED FOR UNKNOWN INDICATION
     Dosage: 600 MG, UNK
  2. CABOTEGRAVIR [Interacting]
     Active Substance: CABOTEGRAVIR
     Indication: HIV INFECTION
     Dosage: 30 MG, UNK
     Route: 048
  3. PAROXETINE. [Concomitant]
     Active Substance: PAROXETINE
     Indication: PRODUCT USED FOR UNKNOWN INDICATION
     Dosage: UNK
  4. VENLAFAXINE [Suspect]
     Active Substance: VENLAFAXINE HYDROCHLORIDE
     Indication: DEPRESSION
     Dosage: 225 MG, QOD
     Route: 048
     Dates: start: 20170815
  5. CABOTEGRAVIR SUSPENSION FOR INJECTION [Interacting]
     Active Substance: CABOTEGRAVIR
     Indication: HIV INFECTION
     Dosage: 2 ML, CYCLE
     Route: 030
  6. RILPIVIRINE [Concomitant]
     Active Substance: RILPIVIRINE
     Dosage: 25 MG, UNK
  7. CABOTEGRAVIR SUSPENSION FOR INJECTION [Interacting]
     Active Substance: CABOTEGRAVIR
     Dosage: 400 MG, UNK
     Route: 030

REACTIONS (5)
  - Medication error [Unknown]
  - Depressed mood [Recovered/Resolved]
  - Depression [Recovered/Resolved]
  - Anxiety [Recovered/Resolved]
  - Drug interaction [Unknown]

NARRATIVE: CASE EVENT DATE: 20170928
